FAERS Safety Report 11737700 (Version 1)
Quarter: 2015Q4

REPORT INFORMATION
  Report Type: Spontaneous
  Country: US (occurrence: None)
  Receive Date: 20151112
  Receipt Date: 20151112
  Transmission Date: 20160304
  Serious: No
  Sender: FDA-Public Use
  Company Number: None

PATIENT
  Age: 34 Month
  Sex: Female

DRUGS (4)
  1. MIRENA [Suspect]
     Active Substance: LEVONORGESTREL
     Indication: CONTRACEPTION
     Route: 067
     Dates: start: 20150305, end: 20151105
  2. MIRENA [Suspect]
     Active Substance: LEVONORGESTREL
     Indication: HYPERTENSION
     Route: 067
     Dates: start: 20150305, end: 20151105
  3. ALIVE MULTIVITAMIN FOR WOMEN [Concomitant]
  4. L-LYSINE [Concomitant]
     Active Substance: LYSINE

REACTIONS (7)
  - Weight increased [None]
  - Mood swings [None]
  - Alopecia [None]
  - Rash [None]
  - Depression [None]
  - Hypertension [None]
  - Urticaria [None]

NARRATIVE: CASE EVENT DATE: 20151111
